FAERS Safety Report 5675427-0 (Version None)
Quarter: 2008Q2

REPORT INFORMATION
  Report Type: 
  Country: None (occurrence: None)
  Receive Date: 20080307
  Receipt Date: 20070214
  Transmission Date: 20081010
  Serious: Yes (Hospitalization)
  Sender: FDA-Public Use
  Company Number: US200611005475

PATIENT
  Age: 59 Year
  Sex: Female

DRUGS (12)
  1. GEMZAR [Suspect]
     Indication: OVARIAN CANCER
     Dosage: 1000 MG/M2, OTHER, INTRAVENOUS
     Route: 042
     Dates: start: 20050322, end: 20060110
  2. CYMBALTA [Concomitant]
  3. DURAGESIC-100 [Concomitant]
  4. ATIVAN [Concomitant]
  5. APRESOLINE [Concomitant]
  6. REGLAN [Concomitant]
  7. PROTONIX [Concomitant]
  8. AVELOX [Concomitant]
  9. FOSAMAX [Concomitant]
  10. COUMADI (WARFARIN SODIUM) [Concomitant]
  11. LASIX [Concomitant]
  12. COZAAR [Concomitant]

REACTIONS (1)
  - CARDIAC FAILURE CONGESTIVE [None]
